FAERS Safety Report 7055109-3 (Version None)
Quarter: 2010Q4

REPORT INFORMATION
  Report Type: 
  Country: None (occurrence: None)
  Receive Date: 20101019
  Receipt Date: 20101019
  Transmission Date: 20110411
  Serious: Yes (Life-Threatening, Hospitalization)
  Sender: FDA-Public Use
  Company Number: None

PATIENT
  Age: 68 Year
  Sex: Female
  Weight: 77.5651 kg

DRUGS (1)
  1. IXEMPRA KIT [Suspect]
     Indication: BREAST CANCER
     Dosage: 40 MG/M2 ONCE EVERY 3 WEEKS IV
     Route: 042
     Dates: start: 20101005, end: 20101005

REACTIONS (6)
  - NEUTROPHIL COUNT DECREASED [None]
  - OROPHARYNGEAL PAIN [None]
  - PYREXIA [None]
  - SEPSIS [None]
  - WHITE BLOOD CELL COUNT DECREASED [None]
  - WOUND INFECTION [None]
